FAERS Safety Report 9188491 (Version 2)
Quarter: 2013Q2

REPORT INFORMATION
  Report Type: Spontaneous
  Country: JP (occurrence: JP)
  Receive Date: 20130325
  Receipt Date: 20130522
  Transmission Date: 20140414
  Serious: Yes (Other)
  Sender: FDA-Public Use
  Company Number: PHHY2013JP027259

PATIENT
  Sex: Male

DRUGS (6)
  1. 5-FLUOROURACIL [Suspect]
     Indication: OESOPHAGEAL CARCINOMA
     Dosage: 320 MG/M2
  2. 5-FLUOROURACIL [Suspect]
     Indication: COLON CANCER
     Dosage: 1920 MG/M2/46 HOUR
  3. OXALIPLATIN [Suspect]
     Indication: OESOPHAGEAL CARCINOMA
     Dosage: 68 MG/M2
  4. OXALIPLATIN [Suspect]
     Indication: COLON CANCER
  5. CALCIUM LEVOFOLINATE [Suspect]
     Indication: OESOPHAGEAL CARCINOMA
     Dosage: 160 MG/M2
  6. CALCIUM LEVOFOLINATE [Suspect]
     Indication: COLON CANCER

REACTIONS (5)
  - Oesophagobronchial fistula [Unknown]
  - Cough [Unknown]
  - Pyrexia [Unknown]
  - Gastric ileus [Recovering/Resolving]
  - Leukopenia [Unknown]
